FAERS Safety Report 10048917 (Version 1)
Quarter: 2014Q1

REPORT INFORMATION
  Report Type: Spontaneous
  Country: DE (occurrence: DE)
  Receive Date: 20140331
  Receipt Date: 20140331
  Transmission Date: 20141002
  Serious: Yes (Hospitalization)
  Sender: FDA-Public Use
  Company Number: DE-ACTAVIS-2013-25063

PATIENT
  Age: 82 Year
  Sex: Male

DRUGS (8)
  1. IBUPROFEN (UNKNOWN) [Suspect]
     Indication: ARTHRALGIA
     Route: 048
  2. PRADAXA [Suspect]
     Indication: ATRIAL FIBRILLATION
     Route: 048
  3. RAMIPRIL [Concomitant]
     Indication: PRODUCT USED FOR UNKNOWN INDICATION
     Route: 048
  4. PANTOZOL 40 [Concomitant]
     Indication: PRODUCT USED FOR UNKNOWN INDICATION
     Route: 048
  5. TOREM [Concomitant]
     Indication: TRICUSPID VALVE INCOMPETENCE
     Route: 048
  6. XIPAMIDE [Concomitant]
     Indication: TRICUSPID VALVE INCOMPETENCE
     Route: 048
  7. SIMVA [Concomitant]
     Indication: PRODUCT USED FOR UNKNOWN INDICATION
     Route: 048
  8. PULMICORT 200 [Concomitant]
     Indication: PRODUCT USED FOR UNKNOWN INDICATION

REACTIONS (1)
  - Lower gastrointestinal haemorrhage [Recovering/Resolving]
